FAERS Safety Report 24189639 (Version 1)
Quarter: 2024Q3

REPORT INFORMATION
  Report Type: Spontaneous
  Country: US (occurrence: US)
  Receive Date: 20240808
  Receipt Date: 20240808
  Transmission Date: 20241017
  Serious: Yes (Death)
  Sender: DR REDDYS
  Company Number: US-E2BLSMVVAL-SPO/USA/24/0011448

PATIENT
  Age: 70 Year
  Sex: Female

DRUGS (1)
  1. LENALIDOMIDE [Suspect]
     Active Substance: LENALIDOMIDE
     Indication: Product used for unknown indication
     Dosage: 21 COUNT.
     Dates: start: 20230602

REACTIONS (1)
  - Death [Fatal]

NARRATIVE: CASE EVENT DATE: 20240515
